FAERS Safety Report 6474033-8 (Version None)
Quarter: 2009Q4

REPORT INFORMATION
  Report Type: 
  Country: None (occurrence: None)
  Receive Date: 20091123
  Receipt Date: 20091005
  Transmission Date: 20100525
  Serious: No
  Sender: FDA-Public Use
  Company Number: 8052961

PATIENT
  Age: 54 Year
  Sex: Female

DRUGS (11)
  1. CIMZIA [Suspect]
     Indication: CROHN'S DISEASE
     Dosage: 400 MG SC
     Route: 058
     Dates: start: 20080901
  2. XANAX [Concomitant]
  3. PROTONIX [Concomitant]
  4. BENZAPRIL [Concomitant]
  5. SYNTHROID [Concomitant]
  6. CARVEDILOL [Concomitant]
  7. POTASSIUM CHLORIDE [Concomitant]
  8. ENTOCORT EC [Concomitant]
  9. TEKTURNA [Concomitant]
  10. HYDROCHLOROTHIAZIDE [Concomitant]
  11. AMLODIPINE [Concomitant]

REACTIONS (2)
  - DYSPNOEA [None]
  - INJECTION SITE REACTION [None]
